FAERS Safety Report 8513054 (Version 3)
Quarter: 2014Q2

REPORT INFORMATION
  Report Type: Report from Study
  Country: US (occurrence: US)
  Receive Date: 20120413
  Receipt Date: 20140616
  Transmission Date: 20141212
  Serious: Yes (Other)
  Sender: FDA-Public Use
  Company Number: US-ROCHE-1055448

PATIENT
  Sex: 0

DRUGS (4)
  1. RITUXIMAB [Suspect]
     Indication: CHRONIC LYMPHOCYTIC LEUKAEMIA
     Route: 042
  2. LENALIDOMIDE [Suspect]
     Indication: CHRONIC LYMPHOCYTIC LEUKAEMIA
     Route: 065
  3. ALLOPURINOL [Concomitant]
  4. ASPIRIN [Concomitant]

REACTIONS (55)
  - Tumour flare [Unknown]
  - Neutropenia [Unknown]
  - Anaemia [Unknown]
  - Thrombocytopenia [Unknown]
  - Fatigue [Unknown]
  - Aspartate aminotransferase increased [Unknown]
  - Alanine aminotransferase increased [Unknown]
  - Hypophosphataemia [Unknown]
  - Infusion related reaction [Unknown]
  - Pneumonia [Unknown]
  - Rash [Unknown]
  - Febrile neutropenia [Unknown]
  - Pulmonary embolism [Unknown]
  - Deep vein thrombosis [Unknown]
  - Hyponatraemia [Unknown]
  - Hypotension [Unknown]
  - Basal cell carcinoma [Unknown]
  - Pyrexia [Unknown]
  - Hypersensitivity [Unknown]
  - Decreased appetite [Unknown]
  - Bacteraemia [Unknown]
  - Cellulitis [Unknown]
  - Diarrhoea [Unknown]
  - Dyspnoea [Unknown]
  - Oedema [Unknown]
  - Headache [Unknown]
  - Haemorrhage [Unknown]
  - Hyperbilirubinaemia [Unknown]
  - Hyperglycaemia [Unknown]
  - Hyperphosphataemia [Unknown]
  - Hypersensitivity [Unknown]
  - Hypoalbuminaemia [Unknown]
  - Hypoglycaemia [Unknown]
  - Hypokalaemia [Unknown]
  - Lung infection [Unknown]
  - Skin infection [Unknown]
  - Nausea [Unknown]
  - Neuropathy peripheral [Unknown]
  - Myalgia [Unknown]
  - Myocardial infarction [Unknown]
  - Abdominal pain [Unknown]
  - Chest pain [Unknown]
  - Arthralgia [Unknown]
  - Myalgia [Unknown]
  - Post polio syndrome [Unknown]
  - Renal failure [Unknown]
  - Chills [Unknown]
  - Squamous cell carcinoma [Unknown]
  - Supraventricular tachycardia [Unknown]
  - Syncope [Unknown]
  - Tumour lysis syndrome [Unknown]
  - Urinary retention [Unknown]
  - Transitional cell carcinoma [Unknown]
  - Urticaria [Unknown]
  - Vomiting [Unknown]
